FAERS Safety Report 4434230-X (Version None)
Quarter: 2004Q3

REPORT INFORMATION
  Report Type: 
  Country: None (occurrence: None)
  Receive Date: 20040825
  Receipt Date: 20040810
  Transmission Date: 20050211
  Serious: Yes (Hospitalization)
  Sender: FDA-Public Use
  Company Number: DSA_60438_2004

PATIENT
  Age: 47 Year
  Sex: Male

DRUGS (2)
  1. TONOPAN [Suspect]
     Indication: HEADACHE
     Dosage: 1 TAB PO
     Route: 048
     Dates: start: 20040611, end: 20040612
  2. TETANUS ANTI-TOXIN [Concomitant]

REACTIONS (2)
  - NEPHRITIS INTERSTITIAL [None]
  - RENAL FAILURE ACUTE [None]
